FAERS Safety Report 4416220-6 (Version None)
Quarter: 2004Q3

REPORT INFORMATION
  Report Type: 
  Country: None (occurrence: None)
  Receive Date: 20040803
  Receipt Date: 20040719
  Transmission Date: 20050211
  Serious: Yes (Hospitalization, Other)
  Sender: FDA-Public Use
  Company Number: US-JNJFOC-20040505479

PATIENT
  Age: 55 Year
  Sex: Female
  Weight: 75.7507 kg

DRUGS (3)
  1. DURAGESIC [Suspect]
     Indication: PAIN
     Dosage: 50 UG/HR, TRANSDERMAL; 100 UG/HR, 1 IN 72 HOUR, TRANSDERMAL; 100 UG/HR, 1 IN 48 HOUR, TRANSDERMAL
     Route: 062
  2. VICODIN [Concomitant]
  3. XANAX [Concomitant]

REACTIONS (6)
  - CARDIAC DISORDER [None]
  - CARDIAC PACEMAKER INSERTION [None]
  - DRUG WITHDRAWAL SYNDROME [None]
  - IMPLANTABLE DEFIBRILLATOR INSERTION [None]
  - RESTLESSNESS [None]
  - SOMNOLENCE [None]
